FAERS Safety Report 25084982 (Version 1)
Quarter: 2025Q1

REPORT INFORMATION
  Report Type: Spontaneous
  Country: CN (occurrence: CN)
  Receive Date: 20250317
  Receipt Date: 20250317
  Transmission Date: 20250409
  Serious: Yes (Life-Threatening)
  Sender: BAYER HEALTHCARE PHARMACEUTICALS INC.
  Company Number: CN-BAYER-2025A036146

PATIENT
  Age: 71 Year
  Sex: Male
  Weight: 70 kg

DRUGS (4)
  1. ULTRAVIST [Suspect]
     Active Substance: IOPROMIDE
     Indication: Computerised tomogram abdomen
     Route: 042
     Dates: start: 20250220, end: 20250220
  2. ULTRAVIST [Suspect]
     Active Substance: IOPROMIDE
     Indication: Angiogram peripheral
  3. ULTRAVIST [Suspect]
     Active Substance: IOPROMIDE
     Indication: 3-Dimensional vasculography
  4. ULTRAVIST [Suspect]
     Active Substance: IOPROMIDE
     Indication: Peripheral arterial occlusive disease

REACTIONS (4)
  - Loss of consciousness [Recovering/Resolving]
  - Asthenia [None]
  - Pallor [None]
  - Blood pressure decreased [None]

NARRATIVE: CASE EVENT DATE: 20250220
